FAERS Safety Report 10174413 (Version 1)
Quarter: 2014Q2

REPORT INFORMATION
  Report Type: Spontaneous
  Country: US (occurrence: US)
  Receive Date: 20140515
  Receipt Date: 20140515
  Transmission Date: 20141212
  Serious: Yes (Hospitalization)
  Sender: FDA-Public Use
  Company Number: US-JNJFOC-20140508339

PATIENT
  Age: 74 Year
  Sex: Male

DRUGS (4)
  1. IMBRUVICA [Suspect]
     Indication: CHRONIC LYMPHOCYTIC LEUKAEMIA
     Route: 065
     Dates: start: 20140423
  2. DEXAMETHASONE [Concomitant]
  3. OXYCODONE [Concomitant]
  4. VITAMIN  D [Concomitant]

REACTIONS (2)
  - Blood magnesium decreased [Unknown]
  - Myocardial infarction [Unknown]
